FAERS Safety Report 5793030-9 (Version None)
Quarter: 2008Q2

REPORT INFORMATION
  Report Type: 
  Country: None (occurrence: None)
  Receive Date: 20080627
  Receipt Date: 20080613
  Transmission Date: 20081010
  Serious: Yes (Other)
  Sender: FDA-Public Use
  Company Number: US-NOVOPROD-274889

PATIENT
  Age: 49 Year
  Sex: Female
  Weight: 112.2 kg

DRUGS (6)
  1. LEVEMIR [Suspect]
     Indication: INSULIN-REQUIRING TYPE 2 DIABETES MELLITUS
     Dosage: SLIDING SCALE
     Route: 058
  2. NOVOLOG MIX 70/30 [Concomitant]
     Indication: INSULIN-REQUIRING TYPE 2 DIABETES MELLITUS
     Dosage: SLIDING SCALE 38-58 IU
     Route: 058
     Dates: end: 20080429
  3. PLAVIX [Concomitant]
     Indication: BLOOD CHOLESTEROL
     Dosage: 75 MG, QD
     Route: 048
  4. ASPIRIN [Concomitant]
     Indication: PROPHYLAXIS
     Dosage: 325 MG, QD
     Route: 048
  5. OMEGA-3                            /00931501/ [Concomitant]
     Indication: PROPHYLAXIS
     Dosage: 1200 MG, TID
     Route: 048
  6. OMEGA-6 FATTY ACIDS [Concomitant]
     Indication: PROPHYLAXIS
     Dosage: UNKNOWN
     Route: 048

REACTIONS (1)
  - MEDICAL DEVICE COMPLICATION [None]
